FAERS Safety Report 5451665-7 (Version None)
Quarter: 2007Q3

REPORT INFORMATION
  Report Type: 
  Country: None (occurrence: None)
  Receive Date: 20070803
  Receipt Date: 20070501
  Transmission Date: 20080115
  Serious: Yes (Other)
  Sender: FDA-Public Use
  Company Number: 36575

PATIENT
  Age: 24 Year
  Sex: Female
  Weight: 51.2565 kg

DRUGS (1)
  1. PROPOFOL [Suspect]
     Indication: ANAESTHESIA
     Dosage: 30 MG/IV
     Route: 042
     Dates: start: 20070427

REACTIONS (1)
  - MUSCLE CONTRACTURE [None]
